FAERS Safety Report 5299205-X (Version None)
Quarter: 2007Q2

REPORT INFORMATION
  Report Type: 
  Country: None (occurrence: None)
  Receive Date: 20070410
  Receipt Date: 20070330
  Transmission Date: 20071010
  Serious: Yes (Death, Hospitalization)
  Sender: FDA-Public Use
  Company Number: 236769

PATIENT
  Age: 68 Year
  Sex: Female

DRUGS (10)
  1. AVASTIN [Suspect]
     Indication: NON-SMALL CELL LUNG CANCER
     Dosage: 15 MG/KG, Q3W, INTRAVENOUS
     Route: 042
     Dates: start: 20061117
  2. DOCETAXEL(DOCETAXEL) [Suspect]
     Indication: NON-SMALL CELL LUNG CANCER
     Dosage: 70 MG/M2, Q3W, INTRAVENOUS
     Route: 042
     Dates: start: 20061117
  3. OXALIPLATIN [Suspect]
     Indication: NON-SMALL CELL LUNG CANCER
     Dosage: 100 MG/M2, Q3W, INTRAVENOUS
     Route: 042
     Dates: start: 20061117
  4. SINGULAIR [Concomitant]
  5. DEXAMETHASONE TAB [Concomitant]
  6. FLUCONAZOLE [Concomitant]
  7. ATIVAN [Concomitant]
  8. LISINOPRIL [Concomitant]
  9. COMPAZINE [Concomitant]
  10. BENADRYL [Concomitant]

REACTIONS (11)
  - ABDOMINAL PAIN [None]
  - CARDIAC ARREST [None]
  - HYPOTENSION [None]
  - LEUKOCYTOSIS [None]
  - LOBAR PNEUMONIA [None]
  - NAUSEA [None]
  - PNEUMONIA [None]
  - PULMONARY OEDEMA [None]
  - RECTAL PERFORATION [None]
  - SEPSIS [None]
  - VOMITING [None]
